FAERS Safety Report 8298998-7 (Version None)
Quarter: 2012Q2

REPORT INFORMATION
  Report Type: 
  Country: None (occurrence: None)
  Receive Date: 20120419
  Receipt Date: 20120404
  Transmission Date: 20120825
  Serious: Yes (Other)
  Sender: FDA-Public Use
  Company Number: PHHY2012DE018465

PATIENT
  Sex: Female
  Weight: 23.5 kg

DRUGS (4)
  1. SANDIMMUNE [Suspect]
     Dosage: 0.7 ML, BID
     Route: 048
     Dates: start: 20100701
  2. SANDIMMUNE [Suspect]
     Route: 048
     Dates: start: 20111101
  3. ACETYLSALICYLIC ACID SRT [Concomitant]
     Indication: COAGULOPATHY
     Dosage: 50 MG, UNK
     Route: 048
     Dates: start: 20090101
  4. SANDIMMUNE [Suspect]
     Indication: NEPHROTIC SYNDROME
     Dosage: 0.7 ML PER DAY
     Route: 048
     Dates: start: 20070701, end: 20100101

REACTIONS (3)
  - CEREBROVASCULAR ACCIDENT [None]
  - HYPERTRICHOSIS [None]
  - HAIR GROWTH ABNORMAL [None]
